FAERS Safety Report 25245194 (Version 4)
Quarter: 2025Q4

REPORT INFORMATION
  Report Type: Spontaneous
  Country: US (occurrence: US)
  Receive Date: 20250428
  Receipt Date: 20251001
  Transmission Date: 20260118
  Serious: No
  Sender: BRISTOL-MYERS SQUIBB COMPANY
  Company Number: US-BRISTOL-MYERS SQUIBB COMPANY-2025-060907

PATIENT
  Age: 78 Year
  Sex: Male

DRUGS (1)
  1. REVLIMID [Suspect]
     Active Substance: LENALIDOMIDE
     Indication: Plasma cell myeloma

REACTIONS (5)
  - Thyroid function test abnormal [Unknown]
  - Product dose omission issue [Unknown]
  - Peripheral swelling [Unknown]
  - White blood cell count decreased [Unknown]
  - Red blood cell count decreased [Unknown]
